FAERS Safety Report 20032762 (Version 1)
Quarter: 2021Q4

REPORT INFORMATION
  Report Type: Report from Study
  Country: IT (occurrence: IT)
  Receive Date: 20211104
  Receipt Date: 20211104
  Transmission Date: 20220304
  Serious: Yes (Other)
  Sender: FDA-Public Use
  Company Number: IT-CELLTRION INC.-2021IT014757

PATIENT

DRUGS (1)
  1. INFLIXIMAB [Suspect]
     Active Substance: INFLIXIMAB
     Indication: Psoriasis
     Dosage: 5 MG, CYCLIC
     Route: 042
     Dates: start: 20080323, end: 20200612

REACTIONS (1)
  - Adenocarcinoma of colon [Recovered/Resolved with Sequelae]

NARRATIVE: CASE EVENT DATE: 20210805
